FAERS Safety Report 24029250 (Version 1)
Quarter: 2024Q2

REPORT INFORMATION
  Report Type: Spontaneous
  Country: US (occurrence: None)
  Receive Date: 20240627
  Receipt Date: 20240627
  Transmission Date: 20240716
  Serious: No
  Sender: FDA-Public Use
  Company Number: None

PATIENT
  Age: 41 Year

DRUGS (1)
  1. TALTZ [Suspect]
     Active Substance: IXEKIZUMAB
     Indication: Psoriasis
     Dosage: OTHER STRENGTH : MC/ML;?FREQUENCY : MONTHLY;?
     Route: 058
     Dates: start: 202405

REACTIONS (2)
  - Tinea infection [None]
  - Immunodeficiency [None]
